FAERS Safety Report 13030898 (Version 1)
Quarter: 2016Q4

REPORT INFORMATION
  Report Type: Other
  Country: DE (occurrence: DE)
  Receive Date: 20161215
  Receipt Date: 20161215
  Transmission Date: 20170207
  Serious: Yes (Other)
  Sender: FDA-Public Use
  Company Number: DE-VALIDUS PHARMACEUTICALS LLC-DE-2016VAL003139

PATIENT
  Age: 64 Year
  Sex: Male
  Weight: 118 kg

DRUGS (13)
  1. AMLODIPINE [Suspect]
     Active Substance: AMLODIPINE BESYLATE
     Indication: PRODUCT USED FOR UNKNOWN INDICATION
     Dosage: 5 MG, UNK
     Route: 065
     Dates: start: 201305, end: 20161120
  2. BAYOTENSIN AKUT [Concomitant]
     Indication: PRODUCT USED FOR UNKNOWN INDICATION
     Dosage: UNK
     Dates: start: 2014
  3. OPIPRAMOL-NEURAXPHARM [Suspect]
     Active Substance: OPIPRAMOL
     Indication: PRODUCT USED FOR UNKNOWN INDICATION
     Dosage: 10 MG, UNK
     Route: 065
  4. RAMIPRIL BETA [Suspect]
     Active Substance: RAMIPRIL
     Indication: PRODUCT USED FOR UNKNOWN INDICATION
     Dosage: 5 MG, BID
     Route: 065
     Dates: start: 2010, end: 20161120
  5. ASPIRIN. [Concomitant]
     Active Substance: ASPIRIN
     Indication: PRODUCT USED FOR UNKNOWN INDICATION
  6. NEPRESOL                           /00017903/ [Suspect]
     Active Substance: DIHYDRALAZINE MESYLATE
     Indication: PRODUCT USED FOR UNKNOWN INDICATION
     Dosage: 25 MG, BID
     Route: 065
     Dates: start: 2009
  7. L THYROXIN HENNING [Suspect]
     Active Substance: LEVOTHYROXINE SODIUM
     Indication: PRODUCT USED FOR UNKNOWN INDICATION
     Dosage: 75 UG, QD
     Route: 065
     Dates: start: 2009
  8. TAMSULOSIN                         /01280302/ [Suspect]
     Active Substance: TAMSULOSIN HYDROCHLORIDE
     Indication: PRODUCT USED FOR UNKNOWN INDICATION
     Dosage: 0.4 MG, QD
     Route: 065
     Dates: start: 201210
  9. PANTOPRAZOL NYC [Suspect]
     Active Substance: PANTOPRAZOLE SODIUM
     Indication: PRODUCT USED FOR UNKNOWN INDICATION
     Dosage: 40 MG, BID
     Route: 065
     Dates: start: 2009
  10. MAGNESIUM [Concomitant]
     Active Substance: MAGNESIUM
     Indication: PRODUCT USED FOR UNKNOWN INDICATION
  11. METOPROLOL TARTRATE. [Suspect]
     Active Substance: METOPROLOL TARTRATE
     Indication: PRODUCT USED FOR UNKNOWN INDICATION
     Dosage: DAILY DOSE: 95.2 MILLIGRAM(S) EVERY DAY
     Route: 065
     Dates: start: 2009, end: 201611
  12. HYDROCHLOROTHIAZIDE. [Suspect]
     Active Substance: HYDROCHLOROTHIAZIDE
     Indication: PRODUCT USED FOR UNKNOWN INDICATION
     Dosage: 12.5 MG, UNK
     Route: 065
     Dates: end: 20161120
  13. ATORVASTATIN STADA [Suspect]
     Active Substance: ATORVASTATIN
     Indication: PRODUCT USED FOR UNKNOWN INDICATION
     Dosage: 10 MG, UNK
     Route: 065

REACTIONS (41)
  - Oedema peripheral [Unknown]
  - Depressed mood [Unknown]
  - Myalgia [Unknown]
  - Vision blurred [Unknown]
  - Anxiety [Unknown]
  - Conjunctivitis [Unknown]
  - Sleep disorder [Unknown]
  - Arthralgia [Unknown]
  - Respiratory distress [Unknown]
  - Dyspnoea [Unknown]
  - Nasal dryness [Unknown]
  - Depression [Unknown]
  - Chest pain [Unknown]
  - Back pain [Unknown]
  - Visual impairment [Unknown]
  - Photophobia [Unknown]
  - Dry mouth [Unknown]
  - Oedema [Unknown]
  - Memory impairment [Unknown]
  - Gingival bleeding [Unknown]
  - Magnesium deficiency [Unknown]
  - Micturition urgency [Unknown]
  - Diarrhoea [Unknown]
  - Weight increased [Unknown]
  - Fatigue [Unknown]
  - Nervousness [Unknown]
  - Muscular weakness [Unknown]
  - Abdominal pain upper [Unknown]
  - Nasal congestion [Unknown]
  - Pruritus [Unknown]
  - Hypoaesthesia [Unknown]
  - Dizziness [Unknown]
  - Erectile dysfunction [Unknown]
  - Muscle spasms [Unknown]
  - Dry eye [Unknown]
  - Lacrimal disorder [Unknown]
  - Balance disorder [Unknown]
  - Sexual dysfunction [Unknown]
  - Headache [Unknown]
  - Abdominal pain [Unknown]
  - Asthenia [Unknown]

NARRATIVE: CASE EVENT DATE: 2009
